FAERS Safety Report 7152346-4 (Version None)
Quarter: 2010Q4

REPORT INFORMATION
  Report Type: 
  Country: None (occurrence: None)
  Receive Date: 20101209
  Receipt Date: 20101209
  Transmission Date: 20110411
  Serious: No
  Sender: FDA-Public Use
  Company Number: None

PATIENT
  Age: 75 Year
  Sex: Male
  Weight: 92.9874 kg

DRUGS (1)
  1. AVODART [Suspect]
     Indication: PROSTATOMEGALY
     Dates: start: 20100223

REACTIONS (3)
  - ARTHRITIS [None]
  - GOUT [None]
  - POLLAKIURIA [None]
